FAERS Safety Report 21026052 (Version 1)
Quarter: 2022Q2

REPORT INFORMATION
  Report Type: Spontaneous
  Country: ES (occurrence: ES)
  Receive Date: 20220630
  Receipt Date: 20220630
  Transmission Date: 20220721
  Serious: Yes (Death, Hospitalization, Other)
  Sender: FDA-Public Use
  Company Number: None

PATIENT
  Age: 74 Year
  Sex: Male
  Weight: 67 kg

DRUGS (18)
  1. LINAGLIPTIN\METFORMIN HYDROCHLORIDE [Suspect]
     Active Substance: LINAGLIPTIN\METFORMIN HYDROCHLORIDE
     Indication: Diabetes mellitus
     Dosage: 1 TABLET A DAY
     Dates: start: 20190722
  2. BISOPROLOL [Concomitant]
     Active Substance: BISOPROLOL
     Indication: Product used for unknown indication
     Dosage: 1 TABLET A DAY
     Dates: start: 20190502
  3. SPIRONOLACTONE [Concomitant]
     Active Substance: SPIRONOLACTONE
     Indication: Hypertension
     Dosage: 1 TABLET A DAY
     Dates: start: 20190502
  4. Lansoprazol 15 mg 28 c?psulas [Concomitant]
     Indication: Dyspepsia
     Dosage: 1 CAPSULE A DAY
     Dates: start: 20190910
  5. CARDURAN NEO 4 mg COMPRIMIDOS DE LIBERACION MODIFICADA [Concomitant]
     Indication: Product used for unknown indication
     Dosage: 1 TABLET A DAY
     Dates: start: 20190502
  6. ASPIRIN [Concomitant]
     Active Substance: ASPIRIN
     Indication: Product used for unknown indication
     Dosage: 1 TABLET A DAY
     Dates: start: 20190502
  7. olmesart?n + amlodipino [Concomitant]
     Indication: Product used for unknown indication
     Dosage: 1TABLET A DAY
     Dates: start: 20190502
  8. DUODART 0,5 MG/0,4 MG CAPSULAS DURAS, 30 c?psulas [Concomitant]
     Indication: Benign prostatic hyperplasia
     Dosage: 1 CAPSULE EACH DAY
     Dates: start: 20190502
  9. DEPRAX 100 MG COMPRIMIDOS RECUBIERTOS CON PELICULA EFG [Concomitant]
     Indication: Blepharospasm
     Dosage: 1 TABLET A DAY
     Dates: start: 20190830
  10. RIVOTRIL [Concomitant]
     Active Substance: CLONAZEPAM
     Indication: Blepharospasm
     Dosage: 1 TABLET A DAY
     Dates: start: 20190830
  11. TORSEMIDE [Concomitant]
     Active Substance: TORSEMIDE
     Indication: Product used for unknown indication
     Dosage: 1 TABLET A DAY
     Dates: start: 20190502
  12. AMIODARONE HYDROCHLORIDE [Concomitant]
     Active Substance: AMIODARONE HYDROCHLORIDE
     Indication: Cardiac assistance device user
     Dosage: 3 TABLETS EACH 7 DAYS
     Dates: start: 20190910
  13. NEUPRO 8 MG/24 H PARCHE TRANSDERMICO, 28 parches [Concomitant]
     Indication: Parkinson^s disease
     Dosage: 1 TRANSDERMAL PATCH EVERY DAY
     Dates: start: 20190830
  14. DELTIUS 25.000 UI/2,5 ML SOLUCION ORAL , 1 frasco de 2,5 ml [Concomitant]
     Indication: Vitamin D decreased
     Dosage: 1 FRASCO CADA 30 D?AS
     Dates: start: 20190502
  15. CARBIDOPA\LEVODOPA [Concomitant]
     Active Substance: CARBIDOPA\LEVODOPA
     Indication: Product used for unknown indication
     Dosage: 4 TABLETS A DAY
     Dates: start: 20190830
  16. PROMETAX 4,6 mg/24 H PARCHE TRANSDERMICO, 60 (2 x 30) parches (multien [Concomitant]
     Indication: Dementia
     Dosage: 1 TRANSDERMAL PATCH EVERY DAY
     Dates: start: 20190830
  17. CARBIDOPA AND LEVODOPA [Concomitant]
     Active Substance: CARBIDOPA\LEVODOPA
     Indication: Product used for unknown indication
     Dosage: 1 TABLET A DAY
     Dates: start: 20190830
  18. QUETIAPINE [Concomitant]
     Active Substance: QUETIAPINE
     Indication: Dementia
     Dosage: 1 TABLET A DAY
     Dates: start: 20190830

REACTIONS (1)
  - Lactic acidosis [Fatal]

NARRATIVE: CASE EVENT DATE: 20200109
